FAERS Safety Report 19183716 (Version 1)
Quarter: 2021Q2

REPORT INFORMATION
  Report Type: Spontaneous
  Country: US (occurrence: US)
  Receive Date: 20210424
  Receipt Date: 20210424
  Transmission Date: 20210717
  Serious: Yes (Life-Threatening, Hospitalization)
  Sender: FDA-Public Use
  Company Number: None

PATIENT
  Age: 71 Year
  Sex: Female
  Weight: 82.35 kg

DRUGS (5)
  1. REPATHA [Suspect]
     Active Substance: EVOLOCUMAB
     Indication: BLOOD CHOLESTEROL INCREASED
     Dosage: ?          QUANTITY:1 INJECTION(S);OTHER FREQUENCY:1 BI?WEEKLY;?
     Route: 058
     Dates: start: 20201005, end: 20210419
  2. ESOMEPRAZOLE MAGNESIUM 40 MG [Suspect]
     Active Substance: ESOMEPRAZOLE MAGNESIUM
  3. OCCASIONAL VEGETABLE LAXATIVE. [Concomitant]
  4. TYLENOL [Concomitant]
     Active Substance: ACETAMINOPHEN
  5. PAROXETINE. [Concomitant]
     Active Substance: PAROXETINE

REACTIONS (16)
  - Oedema [None]
  - Dizziness [None]
  - Arthralgia [None]
  - Vision blurred [None]
  - Eyelid pain [None]
  - Feeling abnormal [None]
  - Arrhythmia [None]
  - Muscle spasticity [None]
  - Facial pain [None]
  - Angioedema [None]
  - Fatigue [None]
  - Headache [None]
  - Neck pain [None]
  - Pain in extremity [None]
  - Dysuria [None]
  - Loss of personal independence in daily activities [None]

NARRATIVE: CASE EVENT DATE: 20210108
